FAERS Safety Report 5505642-8 (Version None)
Quarter: 2007Q4

REPORT INFORMATION
  Report Type: 
  Country: None (occurrence: None)
  Receive Date: 20071102
  Receipt Date: 20071022
  Transmission Date: 20080405
  Serious: Yes (Other)
  Sender: FDA-Public Use
  Company Number: GB-PFIZER INC-2007072342

PATIENT
  Age: 54 Year
  Sex: Female
  Weight: 94 kg

DRUGS (15)
  1. CHAMPIX [Suspect]
     Route: 048
     Dates: start: 20070307, end: 20070309
  2. AMOXICILLIN [Concomitant]
  3. COMBIVENT [Concomitant]
     Route: 055
  4. ESCITALOPRAM OXALATE [Concomitant]
  5. FRUSEMIDE [Concomitant]
  6. KLIOVANCE [Concomitant]
  7. LANSOPRAZOLE [Concomitant]
  8. LISINOPRIL [Concomitant]
  9. MADOPAR [Concomitant]
  10. NICOTINE [Concomitant]
     Route: 062
  11. ACETAMINOPHEN [Concomitant]
  12. PREDNISOLONE [Concomitant]
  13. QUININE SULFATE [Concomitant]
  14. ROPINIROLE HCL [Concomitant]
  15. SERETIDE [Concomitant]
     Route: 055

REACTIONS (6)
  - CHRONIC OBSTRUCTIVE PULMONARY DISEASE [None]
  - DIZZINESS [None]
  - HYPERSOMNIA [None]
  - LETHARGY [None]
  - NAUSEA [None]
  - RESPIRATORY DISTRESS [None]
